FAERS Safety Report 22060300 (Version 2)
Quarter: 2023Q4

REPORT INFORMATION
  Report Type: Spontaneous
  Country: US (occurrence: US)
  Receive Date: 20230303
  Receipt Date: 20231123
  Transmission Date: 20240110
  Serious: Yes (Hospitalization)
  Sender: FDA-Public Use
  Company Number: US-BIOVITRUM-2023-US-005853

PATIENT
  Age: 11 Month
  Sex: Male

DRUGS (1)
  1. SYNAGIS [Suspect]
     Active Substance: PALIVIZUMAB
     Indication: Congenital coronary artery malformation
     Dosage: 15 MG/KG MONTHLY
     Route: 030
     Dates: start: 20221122

REACTIONS (1)
  - Metapneumovirus infection [Unknown]

NARRATIVE: CASE EVENT DATE: 20230227
